FAERS Safety Report 8776617 (Version 1)
Quarter: 2012Q4

REPORT INFORMATION
  Report Type: 
  Country: NL (occurrence: NL)
  Receive Date: 20120910
  Receipt Date: 20120910
  Transmission Date: 20130627
  Serious: Yes (Hospitalization)
  Sender: FDA-Public Use
  Company Number: PHHY2012NL076929

PATIENT
  Age: 84 Year
  Sex: Female
  Weight: 85 kg

DRUGS (7)
  1. EXELON PATCH [Suspect]
     Indication: DEMENTIA ALZHEIMER^S TYPE
     Dosage: 4.6 mg, / 24 Hrs
     Route: 062
     Dates: start: 20110202, end: 20110428
  2. EXELON PATCH [Suspect]
     Dosage: 9.5 mg / 24 Hrs
     Route: 062
     Dates: start: 20110429, end: 20120829
  3. HYDROCHLOROTHIAZIDE [Concomitant]
     Dosage: 1 DF, daily
  4. FOSINOPRIL [Concomitant]
     Dosage: 1 DF, daily
  5. ALENDRONIC ACID [Concomitant]
     Dosage: 70 mg, once weekly
  6. CALCI CHEW D3 [Concomitant]
     Dosage: 1 DF, (500mg/400IE ) daily
  7. SIMVASTATIN [Concomitant]
     Dosage: 1 DF, daily

REACTIONS (2)
  - Hypersensitivity [Recovering/Resolving]
  - Pyrexia [Recovering/Resolving]
